FAERS Safety Report 8535559-6 (Version None)
Quarter: 2012Q3

REPORT INFORMATION
  Report Type: 
  Country: None (occurrence: None)
  Receive Date: 20120717
  Receipt Date: 20120717
  Transmission Date: 20120928
  Serious: No
  Sender: FDA-Public Use
  Company Number: None

PATIENT
  Sex: Female
  Weight: 80.7403 kg

DRUGS (10)
  1. VENLAFAXINE [Concomitant]
  2. VITAMIN D [Concomitant]
  3. ATORVASTATIN [Concomitant]
  4. ALENDRONATE SODIUM [Concomitant]
  5. FERROUS SULFATE TAB [Concomitant]
  6. LYRICA [Concomitant]
  7. AZATHIOPRINE [Concomitant]
  8. LISINOPRIL [Concomitant]
  9. PREDNISION [Concomitant]
  10. BUPROPION HCL [Suspect]
     Indication: DEPRESSION
     Dosage: 300MG ONCE A DAY PO
     Route: 048
     Dates: start: 20120612, end: 20120710

REACTIONS (4)
  - CONFUSIONAL STATE [None]
  - DRUG INEFFECTIVE [None]
  - LISTLESS [None]
  - DIARRHOEA [None]
